FAERS Safety Report 21324910 (Version 1)
Quarter: 2022Q3

REPORT INFORMATION
  Report Type: Spontaneous
  Country: US (occurrence: None)
  Receive Date: 20220912
  Receipt Date: 20220912
  Transmission Date: 20221027
  Serious: Yes (Life-Threatening, Hospitalization)
  Sender: FDA-Public Use
  Company Number: None

PATIENT
  Age: 18 Year
  Sex: Female
  Weight: 49.5 kg

DRUGS (1)
  1. ESCITALOPRAM [Suspect]
     Active Substance: ESCITALOPRAM OXALATE
     Indication: Depression
     Dosage: OTHER QUANTITY : 30 TABLET(S);?
     Route: 048
     Dates: start: 20220524

REACTIONS (11)
  - Abnormal behaviour [None]
  - Ephelides [None]
  - Decreased appetite [None]
  - Somnolence [None]
  - Weight decreased [None]
  - Fatigue [None]
  - Road traffic accident [None]
  - Muscle spasms [None]
  - Completed suicide [None]
  - Drug dependence [None]
  - Pain [None]

NARRATIVE: CASE EVENT DATE: 20220813
